FAERS Safety Report 8259514-9 (Version None)
Quarter: 2012Q2

REPORT INFORMATION
  Report Type: 
  Country: None (occurrence: None)
  Receive Date: 20120404
  Receipt Date: 20120316
  Transmission Date: 20120825
  Serious: No
  Sender: FDA-Public Use
  Company Number: MX-PFIZER INC-2012060911

PATIENT
  Sex: Female

DRUGS (1)
  1. CLINDAMYCIN HCL [Suspect]
     Route: 048

REACTIONS (5)
  - HYPOTHERMIA [None]
  - PALLOR [None]
  - PRODUCT ODOUR ABNORMAL [None]
  - NO ADVERSE EVENT [None]
  - PRODUCT TASTE ABNORMAL [None]
